FAERS Safety Report 18327535 (Version 2)
Quarter: 2021Q3

REPORT INFORMATION
  Report Type: Spontaneous
  Country: US (occurrence: US)
  Receive Date: 20200930
  Receipt Date: 20210902
  Transmission Date: 20211014
  Serious: Yes (Other)
  Sender: FDA-Public Use
  Company Number: US-SA-2020SA267025

PATIENT
  Age: 48 Year
  Sex: Male

DRUGS (1)
  1. ZANTAC [Suspect]
     Active Substance: RANITIDINE HYDROCHLORIDE
     Indication: GASTROOESOPHAGEAL REFLUX DISEASE
     Dosage: 25 MG, QD
     Dates: start: 199807, end: 201901

REACTIONS (4)
  - Prostate cancer [Unknown]
  - Prostate cancer stage I [Unknown]
  - Hepatic cancer [Unknown]
  - Bone cancer [Unknown]

NARRATIVE: CASE EVENT DATE: 200401
